FAERS Safety Report 4702207-2 (Version None)
Quarter: 2005Q2

REPORT INFORMATION
  Report Type: 
  Country: None (occurrence: None)
  Receive Date: 20050628
  Receipt Date: 20050628
  Transmission Date: 20051028
  Serious: Yes (Other)
  Sender: FDA-Public Use
  Company Number: None

PATIENT
  Age: 27 Year
  Sex: Female
  Weight: 65.7716 kg

DRUGS (1)
  1. LARIAM [Suspect]
     Indication: MALARIA PROPHYLAXIS
     Dates: start: 20041218, end: 20050214

REACTIONS (4)
  - ANXIETY [None]
  - DIZZINESS [None]
  - HEADACHE [None]
  - MEMORY IMPAIRMENT [None]
